FAERS Safety Report 21011782 (Version 1)
Quarter: 2022Q2

REPORT INFORMATION
  Report Type: Report from Study
  Country: GB (occurrence: GB)
  Receive Date: 20220627
  Receipt Date: 20220627
  Transmission Date: 20220720
  Serious: Yes (Other)
  Sender: FDA-Public Use
  Company Number: GB-TEVA-2022-GB-2050896

PATIENT
  Sex: Male

DRUGS (1)
  1. OCTREOTIDE [Suspect]
     Active Substance: OCTREOTIDE
     Indication: Product used for unknown indication
     Dosage: DATE OF LAST ADMINISTRATION: 14-MAY-2022
     Route: 065

REACTIONS (4)
  - Neoplasm malignant [Unknown]
  - Metastases to lung [Unknown]
  - Metastases to abdominal cavity [Unknown]
  - Emotional distress [Unknown]
